FAERS Safety Report 10790385 (Version 1)
Quarter: 2015Q1

REPORT INFORMATION
  Report Type: Spontaneous
  Country: US (occurrence: US)
  Receive Date: 20150212
  Receipt Date: 20150212
  Transmission Date: 20150721
  Serious: Yes (Disabling)
  Sender: FDA-Public Use
  Company Number: US-TEVA-539432USA

PATIENT
  Age: 50 Year
  Sex: Female

DRUGS (1)
  1. FENTORA [Suspect]
     Active Substance: FENTANYL CITRATE
     Indication: BACK PAIN
     Route: 002
     Dates: end: 20150108

REACTIONS (9)
  - Swelling face [Unknown]
  - Drug withdrawal syndrome [Unknown]
  - Pyrexia [Unknown]
  - Confusional state [Unknown]
  - Pain [Unknown]
  - Eye swelling [Unknown]
  - Vomiting [Unknown]
  - Decreased appetite [Unknown]
  - Dizziness [Unknown]

NARRATIVE: CASE EVENT DATE: 20150104
